FAERS Safety Report 24226967 (Version 1)
Quarter: 2024Q3

REPORT INFORMATION
  Report Type: Other
  Country: CA (occurrence: CA)
  Receive Date: 20240820
  Receipt Date: 20240820
  Transmission Date: 20241017
  Serious: Yes (Other)
  Sender: APOTEX
  Company Number: CA-APOTEX-2024AP009303

PATIENT
  Age: 35 Year
  Sex: Female

DRUGS (20)
  1. METHOTREXATE [Suspect]
     Active Substance: METHOTREXATE
     Indication: Cheilitis
     Dosage: UNK
     Route: 065
  2. TACROLIMUS [Suspect]
     Active Substance: TACROLIMUS
     Indication: Prophylaxis
     Dosage: UNK
     Route: 065
  3. TACROLIMUS [Suspect]
     Active Substance: TACROLIMUS
     Indication: Cheilitis
  4. DOXYCYCLINE [Suspect]
     Active Substance: DOXYCYCLINE\DOXYCYCLINE HYCLATE
     Indication: Cheilitis
     Dosage: UNK
     Route: 065
  5. CRISABOROLE [Suspect]
     Active Substance: CRISABOROLE
     Indication: Dermatitis atopic
     Dosage: UNK, Q.12H
     Route: 065
  6. CRISABOROLE [Suspect]
     Active Substance: CRISABOROLE
     Indication: Cheilitis
     Dosage: UNK
     Route: 065
  7. DAPSONE [Suspect]
     Active Substance: DAPSONE
     Indication: Cheilitis
     Dosage: 5 PERCENT, Q.12H
     Route: 065
  8. DAPSONE [Suspect]
     Active Substance: DAPSONE
     Dosage: UNK
     Route: 065
  9. DUPILUMAB [Suspect]
     Active Substance: DUPILUMAB
     Indication: Cheilitis
     Dosage: 300 MILLIGRAM, EVERY 4 WEEKS
     Route: 065
  10. DUPILUMAB [Suspect]
     Active Substance: DUPILUMAB
     Dosage: 600 MILLIGRAM
     Route: 065
  11. HYDROCORTISONE VALERATE [Suspect]
     Active Substance: HYDROCORTISONE VALERATE
     Indication: Cheilitis
     Dosage: 0.2 PERCENT
     Route: 065
  12. HYDROCORTISONE VALERATE [Suspect]
     Active Substance: HYDROCORTISONE VALERATE
     Dosage: UNK
     Route: 065
  13. ISOTRETINOIN [Suspect]
     Active Substance: ISOTRETINOIN
     Indication: Oral pustule
     Dosage: 10 MILLIGRAM, QD
     Route: 065
  14. ISOTRETINOIN [Suspect]
     Active Substance: ISOTRETINOIN
     Indication: Cheilitis
     Dosage: UNK
     Route: 065
  15. METHOTREXATE [Suspect]
     Active Substance: METHOTREXATE
     Indication: Oral pustule
     Dosage: UNK
     Route: 065
  16. METHOTREXATE [Suspect]
     Active Substance: METHOTREXATE
     Indication: Cheilitis
  17. TACROLIMUS [Suspect]
     Active Substance: TACROLIMUS
     Indication: Prophylaxis
     Dosage: UNK
     Route: 061
  18. TACROLIMUS [Suspect]
     Active Substance: TACROLIMUS
     Indication: Cheilitis
  19. PARAFFIN [Concomitant]
     Active Substance: PARAFFIN
     Indication: Cheilitis
     Dosage: UNK
     Route: 065
  20. VALACYCLOVIR HYDROCHLORIDE [Concomitant]
     Active Substance: VALACYCLOVIR HYDROCHLORIDE
     Indication: Prophylaxis
     Dosage: 500 MILLIGRAM, Q.12H
     Route: 065

REACTIONS (7)
  - Cheilitis [Recovered/Resolved]
  - Condition aggravated [Recovered/Resolved]
  - Eyelid irritation [Recovered/Resolved]
  - Off label use [Recovered/Resolved]
  - Dermatitis [Recovered/Resolved]
  - Therapeutic product ineffective [Recovered/Resolved]
  - Drug ineffective [Recovered/Resolved]
